FAERS Safety Report 20606156 (Version 2)
Quarter: 2022Q1

REPORT INFORMATION
  Report Type: Report from Study
  Country: AR (occurrence: AR)
  Receive Date: 20220317
  Receipt Date: 20220325
  Transmission Date: 20220423
  Serious: Yes (Death, Hospitalization, Other)
  Sender: FDA-Public Use
  Company Number: AR-NOVARTISPH-NVSC2022AR061672

PATIENT
  Sex: Female

DRUGS (1)
  1. DIOVAN [Suspect]
     Active Substance: VALSARTAN
     Indication: Blood pressure increased
     Dosage: 1 DOSAGE FORM, QD (START DATE: MORE THAN 10 YEARS AGO)
     Route: 065

REACTIONS (4)
  - Infection [Fatal]
  - Confusional state [Fatal]
  - Dementia Alzheimer^s type [Unknown]
  - Feeling abnormal [Unknown]
